FAERS Safety Report 5722791-X (Version None)
Quarter: 2008Q2

REPORT INFORMATION
  Report Type: 
  Country: None (occurrence: None)
  Receive Date: 20080429
  Receipt Date: 20080204
  Transmission Date: 20081010
  Serious: No
  Sender: FDA-Public Use
  Company Number: US-ASTRAZENECA-2008UW02351

PATIENT
  Age: 74 Year
  Sex: Male

DRUGS (2)
  1. NEXIUM [Suspect]
     Route: 048
  2. PRILOSEC OTC [Suspect]
     Indication: ABDOMINAL PAIN UPPER
     Dates: start: 20080201, end: 20080201

REACTIONS (2)
  - ANXIETY [None]
  - SOMNOLENCE [None]
